FAERS Safety Report 4963531-1 (Version None)
Quarter: 2006Q1

REPORT INFORMATION
  Report Type: 
  Country: None (occurrence: None)
  Receive Date: 20060201
  Receipt Date: 20051122
  Transmission Date: 20060701
  Serious: No
  Sender: FDA-Public Use
  Company Number: 2005PV004714

PATIENT
  Age: 71 Year
  Sex: Male
  Weight: 88.905 kg

DRUGS (13)
  1. BYETTA [Suspect]
     Indication: DIABETES MELLITUS NON-INSULIN-DEPENDENT
     Dosage: SEE IMAGE
     Route: 058
     Dates: start: 20051102, end: 20051109
  2. BYETTA [Suspect]
     Indication: DIABETES MELLITUS NON-INSULIN-DEPENDENT
     Dosage: SEE IMAGE
     Route: 058
     Dates: start: 20051109, end: 20051116
  3. ACTOS [Concomitant]
  4. NOVOLOG [Concomitant]
  5. LANTUS [Concomitant]
  6. PRINZIDE [Concomitant]
  7. ALTOPREV 60 [Concomitant]
  8. DYOZIDE [Concomitant]
  9. KLONOPIN [Concomitant]
  10. ASPIRIN [Concomitant]
  11. ALPHAGAN [Concomitant]
  12. SELENIUM SULFIDE [Concomitant]
  13. ALPHA EYE [Concomitant]

REACTIONS (7)
  - ABDOMINAL PAIN UPPER [None]
  - BLOOD GLUCOSE INCREASED [None]
  - DECREASED APPETITE [None]
  - DIARRHOEA [None]
  - DRUG INEFFECTIVE [None]
  - DYSGEUSIA [None]
  - WEIGHT DECREASED [None]
